FAERS Safety Report 13387714 (Version 1)
Quarter: 2017Q1

REPORT INFORMATION
  Report Type: Spontaneous
  Country: JP (occurrence: JP)
  Receive Date: 20170330
  Receipt Date: 20170330
  Transmission Date: 20170429
  Serious: Yes (Other)
  Sender: FDA-Public Use
  Company Number: JP-HQ SPECIALTY-JP-2017INT000093

PATIENT
  Age: 78 Year
  Sex: Female

DRUGS (4)
  1. DEXAMETHASONE. [Suspect]
     Active Substance: DEXAMETHASONE
     Indication: ANGIOIMMUNOBLASTIC T-CELL LYMPHOMA REFRACTORY
     Dosage: DOSE REDUCED BY TWO THIRDS, X2 COURSES
  2. CISPLATIN. [Suspect]
     Active Substance: CISPLATIN
     Indication: ANGIOIMMUNOBLASTIC T-CELL LYMPHOMA REFRACTORY
     Dosage: DOSE REDUCED BY TWO THIRDS, X2 COURSES
  3. MOGAMULIZUMAB [Suspect]
     Active Substance: MOGAMULIZUMAB
     Indication: ANGIOIMMUNOBLASTIC T-CELL LYMPHOMA REFRACTORY
     Dosage: 1 MG/KG, WEEKLY, X8 COURSES
     Route: 042
  4. GEMCITABINE [Suspect]
     Active Substance: GEMCITABINE\GEMCITABINE HYDROCHLORIDE
     Indication: ANGIOIMMUNOBLASTIC T-CELL LYMPHOMA REFRACTORY
     Dosage: DOSE REDUCED BY TWO THIRDS, X2 COURSES

REACTIONS (5)
  - Thrombocytopenia [Unknown]
  - Toxicity to various agents [Unknown]
  - Anaemia [Unknown]
  - Neutropenia [Unknown]
  - Lymphopenia [Unknown]
